FAERS Safety Report 25100445 (Version 1)
Quarter: 2025Q1

REPORT INFORMATION
  Report Type: Spontaneous
  Country: US (occurrence: None)
  Receive Date: 20250319
  Receipt Date: 20250319
  Transmission Date: 20250408
  Serious: Yes (Other)
  Sender: FDA-CTU
  Company Number: None

PATIENT
  Age: 78 Year
  Sex: Male

DRUGS (1)
  1. LEVOFLOXACIN [Suspect]
     Active Substance: LEVOFLOXACIN
     Dosage: 500 MG DAILY ORAL
     Route: 048
     Dates: start: 20250317, end: 20250319

REACTIONS (1)
  - Tendonitis [None]

NARRATIVE: CASE EVENT DATE: 20250319
